FAERS Safety Report 5661108-6 (Version None)
Quarter: 2008Q1

REPORT INFORMATION
  Report Type: 
  Country: None (occurrence: None)
  Receive Date: 20080305
  Receipt Date: 20080222
  Transmission Date: 20080703
  Serious: No
  Sender: FDA-Public Use
  Company Number: CHPA2008US03401

PATIENT
  Age: 76 Year
  Sex: Female

DRUGS (3)
  1. BENEFIBER [Suspect]
     Indication: DIVERTICULITIS
     Dosage: 2 TSP, TID, ORAL
     Route: 048
     Dates: start: 20080208
  2. OMEPRAZOLE [Concomitant]
  3. DRUG THERAPY NOS (DRUG THERAPY NOS) [Concomitant]

REACTIONS (1)
  - DIVERTICULITIS [None]
